FAERS Safety Report 4319963-8 (Version None)
Quarter: 2004Q1

REPORT INFORMATION
  Report Type: 
  Country: None (occurrence: None)
  Receive Date: 20040316
  Receipt Date: 20040301
  Transmission Date: 20041129
  Serious: Yes (Death)
  Sender: FDA-Public Use
  Company Number: USA030435063

PATIENT
  Age: 93 Year
  Sex: Male
  Weight: 69 kg

DRUGS (18)
  1. FORTEO [Suspect]
     Indication: BACK PAIN
     Dosage: 20 UG/1 DAY
     Dates: start: 20030417, end: 20030101
  2. FORTEO [Suspect]
     Indication: INTERVERTEBRAL DISC PROTRUSION
     Dosage: 20 UG/1 DAY
     Dates: start: 20030417, end: 20030101
  3. FORTEO [Suspect]
     Indication: OSTEOPOROSIS
     Dosage: 20 UG/1 DAY
     Dates: start: 20030417, end: 20030101
  4. AZMACORT [Concomitant]
  5. ATROVENT [Concomitant]
  6. CARDIZEM [Concomitant]
  7. FUROSEMIDE [Concomitant]
  8. ISOSORBIDE [Concomitant]
  9. LEVOTHROID [Concomitant]
  10. NITROPATCH (GLYCERYL TRINITRATE) [Concomitant]
  11. PLAVIX [Concomitant]
  12. PREDNISONE [Concomitant]
  13. SEPTRA [Concomitant]
  14. SEREVENT [Concomitant]
  15. SINGULAIR [Concomitant]
  16. ULTRACET [Concomitant]
  17. XOPENEX [Concomitant]
  18. ANTIBIOTIC [Concomitant]

REACTIONS (6)
  - CARDIAC FAILURE CONGESTIVE [None]
  - CHRONIC OBSTRUCTIVE AIRWAYS DISEASE [None]
  - COMA [None]
  - DECREASED APPETITE [None]
  - NAUSEA [None]
  - RESPIRATORY FAILURE [None]
